FAERS Safety Report 9001526 (Version 1)
Quarter: 2013Q1

REPORT INFORMATION
  Report Type: Spontaneous
  Country: US (occurrence: US)
  Receive Date: 20130107
  Receipt Date: 20130107
  Transmission Date: 20140127
  Serious: Yes (Death)
  Sender: FDA-Public Use
  Company Number: US-PFIZER INC-2013003552

PATIENT
  Age: 59 Year
  Sex: Male

DRUGS (7)
  1. MORPHINE SULFATE [Suspect]
     Dosage: UNK
  2. ALPRAZOLAM [Suspect]
     Dosage: UNK
  3. PROPANOLOL HCL [Suspect]
     Dosage: UNK
  4. HYDROMORPHONE [Suspect]
     Dosage: UNK
  5. MIRTAZAPINE [Suspect]
     Dosage: UNK
  6. DULOXETINE [Suspect]
     Dosage: UNK
  7. METOPROLOL [Suspect]
     Dosage: UNK

REACTIONS (2)
  - Cardiac arrest [Fatal]
  - Respiratory arrest [Fatal]
